FAERS Safety Report 7040533-5 (Version None)
Quarter: 2010Q4

REPORT INFORMATION
  Report Type: 
  Country: None (occurrence: None)
  Receive Date: 20101008
  Receipt Date: 20101008
  Transmission Date: 20110411
  Serious: Yes (Death)
  Sender: FDA-Public Use
  Company Number: None

PATIENT
  Age: 48 Year
  Sex: Male
  Weight: 78.6 kg

DRUGS (4)
  1. CELEXA [Suspect]
     Indication: ANXIETY
     Dosage: 40 MG NIGHTLY ORALLY
     Route: 048
     Dates: end: 20100916
  2. CELEXA [Suspect]
     Indication: DEPRESSION
     Dosage: 40 MG NIGHTLY ORALLY
     Route: 048
     Dates: end: 20100916
  3. ZOLPIDEM [Concomitant]
  4. LORAZEPAM [Concomitant]

REACTIONS (1)
  - COMPLETED SUICIDE [None]
